FAERS Safety Report 5062131-5 (Version None)
Quarter: 2006Q3

REPORT INFORMATION
  Report Type: 
  Country: None (occurrence: None)
  Receive Date: 20060703
  Receipt Date: 20051005
  Transmission Date: 20061208
  Serious: No
  Sender: FDA-Public Use
  Company Number: 2005S1010054

PATIENT
  Age: 17 Year
  Sex: Male

DRUGS (9)
  1. CLOZAPINE [Suspect]
     Dosage: 200 MG;HS;PO
     Route: 048
     Dates: start: 20050920
  2. VALPROATE SODIUM [Concomitant]
  3. HYDROCHLOROTHIAZIDE [Concomitant]
  4. LEVOTHYROXINE SODIUM [Concomitant]
  5. TRAZODONE HCL [Concomitant]
  6. ARIPIPRAZOLE [Concomitant]
  7. BENZATROPINE [Concomitant]
  8. NALTREXONE [Concomitant]
  9. IBUPROFEN [Concomitant]

REACTIONS (1)
  - GRANULOCYTOPENIA [None]
